FAERS Safety Report 19275451 (Version 5)
Quarter: 2021Q2

REPORT INFORMATION
  Report Type: Report from Study
  Country: None (occurrence: CH)
  Receive Date: 20210519
  Receipt Date: 20210623
  Transmission Date: 20210717
  Serious: Yes (Hospitalization)
  Sender: FDA-Public Use
  Company Number: CH-ABBVIE-21K-151-3909122-00

PATIENT
  Age: 57 Year
  Sex: Female

DRUGS (4)
  1. DUODOPA [Suspect]
     Active Substance: CARBIDOPA\LEVODOPA
     Dosage: MD: 3.5 ML, CRD: 4.3 ML/H, CRN: 2.7 ML/H, ED: 1 ML, 1 CASSETTE / DAY
     Route: 050
     Dates: start: 20210104
  2. DUODOPA [Suspect]
     Active Substance: CARBIDOPA\LEVODOPA
     Indication: PARKINSON^S DISEASE
     Dosage: 1 CASSETTE / DAY
     Route: 050
     Dates: start: 20170321
  3. DUODOPA [Suspect]
     Active Substance: CARBIDOPA\LEVODOPA
     Dosage: MD: 3.2 ML, CRD: 4.2 ML/H, CRN: 2.6 ML/H, ED: 1 ML / 1 CASSETTE PER DAY
     Route: 050
     Dates: start: 20201214, end: 20210104
  4. DUODOPA [Suspect]
     Active Substance: CARBIDOPA\LEVODOPA
     Dosage: MD: 3.2 ML, CRD: 4.2 ML/H, CRN: 2.6 ML/H, ED: 0.4 ML, 1 CASSETTE / DAY
     Route: 050
     Dates: start: 20201209, end: 20201214

REACTIONS (3)
  - General physical health deterioration [Unknown]
  - Hospitalisation [Unknown]
  - Drug withdrawal syndrome [Unknown]

NARRATIVE: CASE EVENT DATE: 20210514
